FAERS Safety Report 19642774 (Version 2)
Quarter: 2021Q3

REPORT INFORMATION
  Report Type: Spontaneous
  Country: CA (occurrence: CA)
  Receive Date: 20210730
  Receipt Date: 20210901
  Transmission Date: 20211014
  Serious: Yes (Other)
  Sender: FDA-Public Use
  Company Number: CA-PFIZER INC-202100943708

PATIENT
  Age: 37 Year
  Sex: Female

DRUGS (2)
  1. METHOTREXATE SODIUM. [Suspect]
     Active Substance: METHOTREXATE SODIUM
     Dosage: 25 MG, WEEKLY
     Route: 065
     Dates: start: 2015
  2. FOLIC ACID. [Concomitant]
     Active Substance: FOLIC ACID
     Dosage: 1 DF, EXCEPT METHOTREXATE DAY

REACTIONS (6)
  - Viral infection [Unknown]
  - Stress [Unknown]
  - Heart rate increased [Unknown]
  - Hypertension [Unknown]
  - Palpitations [Unknown]
  - Sleep deficit [Unknown]

NARRATIVE: CASE EVENT DATE: 2021
